FAERS Safety Report 7105347-6 (Version None)
Quarter: 2010Q4

REPORT INFORMATION
  Report Type: 
  Country: None (occurrence: None)
  Receive Date: 20101116
  Receipt Date: 20101105
  Transmission Date: 20110411
  Serious: Yes (Hospitalization)
  Sender: FDA-Public Use
  Company Number: ES-US-EMD SERONO, INC.-7023561

PATIENT
  Sex: Female

DRUGS (12)
  1. REBIF [Suspect]
     Indication: MULTIPLE SCLEROSIS
     Dosage: MULTIDOSE
     Route: 058
     Dates: start: 20100930, end: 20101020
  2. DEFLAZACORT [Concomitant]
     Route: 048
  3. INACID [Concomitant]
     Route: 048
  4. DULOXETIN [Concomitant]
     Route: 048
  5. HYDROXIL [Concomitant]
     Route: 048
  6. IMIGRAN NEO [Concomitant]
     Route: 048
  7. LORAZEPAM [Concomitant]
     Route: 048
  8. OMEPRAZOLE [Concomitant]
     Route: 048
  9. PARACETAMOL [Concomitant]
     Route: 048
  10. PRIMPERAN [Concomitant]
     Route: 048
  11. TRYPTIZOL [Concomitant]
     Route: 048
  12. NAPROXEN [Concomitant]
     Indication: HEADACHE
     Route: 048
     Dates: start: 20101028

REACTIONS (5)
  - GENERAL PHYSICAL HEALTH DETERIORATION [None]
  - INJECTION SITE PAIN [None]
  - INJECTION SITE REACTION [None]
  - PARAESTHESIA [None]
  - VOMITING [None]
